FAERS Safety Report 23385383 (Version 4)
Quarter: 2024Q2

REPORT INFORMATION
  Report Type: Report from Study
  Country: US (occurrence: US)
  Receive Date: 20240110
  Receipt Date: 20240527
  Transmission Date: 20240716
  Serious: No
  Sender: FDA-Public Use
  Company Number: US-SA-SAC20240108000918

PATIENT
  Age: 46 Year
  Sex: Female
  Weight: 61.23 kg

DRUGS (11)
  1. DUPILUMAB [Suspect]
     Active Substance: DUPILUMAB
     Indication: Dermatitis allergic
     Dosage: 600 MG, 1X
     Route: 058
  2. DUPILUMAB [Suspect]
     Active Substance: DUPILUMAB
     Indication: Dermatitis atopic
     Dosage: 300 MG, QOW
     Route: 058
     Dates: start: 20230301
  3. DROSPIRENONE [Concomitant]
     Active Substance: DROSPIRENONE
  4. BIOTIN [Concomitant]
     Active Substance: BIOTIN
  5. BIOTIN [Concomitant]
     Active Substance: BIOTIN
  6. BIOTIN [Concomitant]
     Active Substance: BIOTIN
  7. CITRACAL + D3 [Concomitant]
  8. CITRACAL + D3 [Concomitant]
  9. CITRACAL + D3 [Concomitant]
  10. VITAMINS [Concomitant]
     Active Substance: VITAMINS
  11. DROSPIRENONE\ETHINYL ESTRADIOL\LEVOMEFOLATE CALCIUM [Concomitant]
     Active Substance: DROSPIRENONE\ETHINYL ESTRADIOL\LEVOMEFOLATE CALCIUM

REACTIONS (6)
  - COVID-19 [Unknown]
  - Cough [Unknown]
  - Fatigue [Unknown]
  - Injection site pain [Recovered/Resolved]
  - Accidental exposure to product [Unknown]
  - Exposure via skin contact [Unknown]

NARRATIVE: CASE EVENT DATE: 20240516
